FAERS Safety Report 18121073 (Version 3)
Quarter: 2023Q4

REPORT INFORMATION
  Report Type: Spontaneous
  Country: US (occurrence: US)
  Receive Date: 20200806
  Receipt Date: 20231003
  Transmission Date: 20240110
  Serious: Yes (Hospitalization, Other)
  Sender: FDA-Public Use
  Company Number: US-GILEAD-2020-0487509

PATIENT
  Age: 32 Year
  Sex: Male
  Weight: 98.866 kg

DRUGS (40)
  1. STRIBILD [Suspect]
     Active Substance: COBICISTAT\ELVITEGRAVIR\EMTRICITABINE\TENOFOVIR DISOPROXIL FUMARATE
     Indication: HIV infection
     Dosage: UNK
     Route: 065
     Dates: start: 20141231, end: 20170707
  2. BIKTARVY [Concomitant]
     Active Substance: BICTEGRAVIR SODIUM\EMTRICITABINE\TENOFOVIR ALAFENAMIDE FUMARATE
  3. PREDNISONE [Concomitant]
     Active Substance: PREDNISONE
  4. VALACYCLOVIR HYDROCHLORIDE [Concomitant]
     Active Substance: VALACYCLOVIR HYDROCHLORIDE
  5. AZITHROMYCIN [Concomitant]
     Active Substance: AZITHROMYCIN
  6. VIAGRA [Concomitant]
     Active Substance: SILDENAFIL CITRATE
  7. STAXYN [Concomitant]
     Active Substance: VARDENAFIL HYDROCHLORIDE
  8. SILDENAFIL [Concomitant]
     Active Substance: SILDENAFIL
  9. STENDRA [Concomitant]
     Active Substance: AVANAFIL
  10. TRAMADOL [Concomitant]
     Active Substance: TRAMADOL\TRAMADOL HYDROCHLORIDE
  11. SULFAMETHOXAZOLE\TRIMETHOPRIM [Concomitant]
     Active Substance: SULFAMETHOXAZOLE\TRIMETHOPRIM
  12. AMBIEN [Concomitant]
     Active Substance: ZOLPIDEM TARTRATE
  13. BACTRIM [Concomitant]
     Active Substance: SULFAMETHOXAZOLE\TRIMETHOPRIM
  14. NEXIUM I.V. [Concomitant]
     Active Substance: ESOMEPRAZOLE SODIUM
  15. ZOSYN [Concomitant]
     Active Substance: PIPERACILLIN SODIUM\TAZOBACTAM SODIUM
  16. ZOLPIDEM [Concomitant]
     Active Substance: ZOLPIDEM TARTRATE
  17. VECTICAL [Concomitant]
     Active Substance: CALCITRIOL
  18. RIFAMPIN [Concomitant]
     Active Substance: RIFAMPIN
  19. PROMETHAZINE [Concomitant]
     Active Substance: PROMETHAZINE HYDROCHLORIDE
  20. PANTOPRAZOLE [Concomitant]
     Active Substance: PANTOPRAZOLE
  21. OMEPRAZOLE [Concomitant]
     Active Substance: OMEPRAZOLE
  22. KETOROLAC [Concomitant]
     Active Substance: KETOROLAC TROMETHAMINE
  23. ALPRAZOLAM [Concomitant]
     Active Substance: ALPRAZOLAM
  24. AMNESTEEM [Concomitant]
     Active Substance: ISOTRETINOIN
  25. BENZONATATE [Concomitant]
     Active Substance: BENZONATATE
  26. CIPROFLOXACIN [Concomitant]
     Active Substance: CIPROFLOXACIN
  27. CLARAVIS [Concomitant]
     Active Substance: ISOTRETINOIN
  28. CLINDAMYCIN [Concomitant]
     Active Substance: CLINDAMYCIN
  29. DOXYCYCLINE HYCLATE [Concomitant]
     Active Substance: DOXYCYCLINE HYCLATE
  30. ECONAZOLE NITRATE [Concomitant]
     Active Substance: ECONAZOLE NITRATE
  31. FLUCONAZOLE [Concomitant]
     Active Substance: FLUCONAZOLE
  32. HYOSCYAMINE [Concomitant]
     Active Substance: HYOSCYAMINE
  33. IBUPROFEN [Concomitant]
     Active Substance: IBUPROFEN
  34. EPIVIR [Concomitant]
     Active Substance: LAMIVUDINE
  35. PREZCOBIX [Concomitant]
     Active Substance: COBICISTAT\DARUNAVIR ETHANOLATE
  36. TIVICAY [Concomitant]
     Active Substance: DOLUTEGRAVIR SODIUM
  37. TRIUMEQ [Concomitant]
     Active Substance: ABACAVIR SULFATE\DOLUTEGRAVIR SODIUM\LAMIVUDINE
  38. ZIAGEN [Concomitant]
     Active Substance: ABACAVIR SULFATE
  39. HYDROCODONE [Concomitant]
     Active Substance: HYDROCODONE
  40. ONDANSETRON [Concomitant]
     Active Substance: ONDANSETRON

REACTIONS (7)
  - Acute kidney injury [Not Recovered/Not Resolved]
  - Chronic kidney disease [Not Recovered/Not Resolved]
  - Depression [Not Recovered/Not Resolved]
  - Anxiety [Not Recovered/Not Resolved]
  - Pollakiuria [Unknown]
  - Pain [Unknown]
  - Emotional distress [Unknown]

NARRATIVE: CASE EVENT DATE: 20171001
